FAERS Safety Report 12390616 (Version 1)
Quarter: 2016Q2

REPORT INFORMATION
  Report Type: Report from Study
  Country: US (occurrence: US)
  Receive Date: 20160520
  Receipt Date: 20160520
  Transmission Date: 20160815
  Serious: No
  Sender: FDA-Public Use
  Company Number: GXBR2016US001253

PATIENT
  Sex: Male

DRUGS (12)
  1. NAPROXEN. [Concomitant]
     Active Substance: NAPROXEN
     Dosage: UNK DF, UNK
  2. METFORMIN [Concomitant]
     Active Substance: METFORMIN HYDROCHLORIDE
     Dosage: UNK DF, UNK
  3. LANTUS [Concomitant]
     Active Substance: INSULIN GLARGINE
     Dosage: UNK DF, UNK
  4. GLATOPA [Suspect]
     Active Substance: GLATIRAMER ACETATE
     Indication: MULTIPLE SCLEROSIS
     Dosage: 20 MG, QD
     Route: 065
  5. MULTI VIT [Concomitant]
     Dosage: UNK DF, UNK
  6. TRAMADOL. [Concomitant]
     Active Substance: TRAMADOL
     Dosage: UNK DF, UNK
  7. SYMBICORT [Concomitant]
     Active Substance: BUDESONIDE\FORMOTEROL FUMARATE DIHYDRATE
     Dosage: UNK DF, UNK
  8. ASPIRIN                            /00346701/ [Concomitant]
     Active Substance: ASCORBIC ACID\ASPIRIN
     Dosage: UNK DF, UNK
  9. LOVASTATIN. [Concomitant]
     Active Substance: LOVASTATIN
     Dosage: UNK DF, UNK
  10. LORATADINE. [Concomitant]
     Active Substance: LORATADINE
     Dosage: UNK DF, UNK
  11. LISINOPRIL. [Concomitant]
     Active Substance: LISINOPRIL
     Dosage: UNK DF, UNK
  12. METOPROLOL. [Concomitant]
     Active Substance: METOPROLOL
     Dosage: UNK DF, UNK

REACTIONS (2)
  - Headache [Not Recovered/Not Resolved]
  - Injection site pain [Not Recovered/Not Resolved]
